FAERS Safety Report 23937007 (Version 1)
Quarter: 2024Q2

REPORT INFORMATION
  Report Type: Spontaneous
  Country: US (occurrence: US)
  Receive Date: 20240604
  Receipt Date: 20240604
  Transmission Date: 20240715
  Serious: Yes (Other)
  Sender: FDA-Public Use
  Company Number: US-002147023-NVSC2024US116402

PATIENT
  Sex: Female

DRUGS (3)
  1. ZOMETA [Suspect]
     Active Substance: ZOLEDRONIC ACID
     Indication: Product used for unknown indication
     Dosage: 4 MG (EVERY 28 DAYS)
     Route: 042
  2. IBRANCE [Suspect]
     Active Substance: PALBOCICLIB
     Indication: Breast cancer
     Dosage: 75 MG (TABLET THREE WEEKS ON AND ONE WEEK OFF)
     Route: 048
  3. COMBIGAN [Suspect]
     Active Substance: BRIMONIDINE TARTRATE\TIMOLOL MALEATE
     Indication: Product used for unknown indication
     Dosage: UNK (ONLY ONE STRENGTH, ONE DROP IN EACH EYE TWICE A DAY)
     Route: 065

REACTIONS (2)
  - Eye inflammation [Unknown]
  - Uveitis [Unknown]
